FAERS Safety Report 12213778 (Version 3)
Quarter: 2016Q2

REPORT INFORMATION
  Report Type: Spontaneous
  Country: US (occurrence: US)
  Receive Date: 20160328
  Receipt Date: 20160505
  Transmission Date: 20160815
  Serious: No
  Sender: FDA-Public Use
  Company Number: US-GLAXOSMITHKLINE-US2016GSK038672

PATIENT
  Age: 77 Year
  Sex: Female

DRUGS (6)
  1. COREG CR [Suspect]
     Active Substance: CARVEDILOL PHOSPHATE
     Dosage: UNK
  2. COREG CR [Suspect]
     Active Substance: CARVEDILOL PHOSPHATE
     Dosage: UNK
  3. COREG CR [Suspect]
     Active Substance: CARVEDILOL PHOSPHATE
     Dosage: UNK
  4. COREG CR [Suspect]
     Active Substance: CARVEDILOL PHOSPHATE
     Indication: HEART RATE DECREASED
     Dosage: 80 MG, QD
     Route: 048
     Dates: start: 2007
  5. COREG [Suspect]
     Active Substance: CARVEDILOL
     Indication: CORONARY ARTERY BYPASS
     Dosage: UNK, QD AT NIGHT
     Dates: start: 2009
  6. COREG CR [Suspect]
     Active Substance: CARVEDILOL PHOSPHATE
     Dosage: UNK

REACTIONS (7)
  - Nausea [Recovering/Resolving]
  - Product quality issue [Unknown]
  - Dizziness [Not Recovered/Not Resolved]
  - Somnolence [Not Recovered/Not Resolved]
  - Diarrhoea [Recovering/Resolving]
  - Disorientation [Recovering/Resolving]
  - Lethargy [Recovering/Resolving]

NARRATIVE: CASE EVENT DATE: 20160305
